FAERS Safety Report 9564804 (Version 3)
Quarter: 2013Q4

REPORT INFORMATION
  Report Type: Spontaneous
  Country: GB (occurrence: GB)
  Receive Date: 20130930
  Receipt Date: 20131115
  Transmission Date: 20140711
  Serious: Yes (Other)
  Sender: FDA-Public Use
  Company Number: PHFR2013GB005500

PATIENT
  Sex: Female

DRUGS (4)
  1. TEGRETOL [Suspect]
     Indication: MENTAL DISORDER
     Dosage: 100 MG, ONE A DAY
     Route: 048
  2. ANAFRANIL [Suspect]
     Indication: MENTAL DISORDER
     Dosage: 150 MG (3 DF), ONCE A DAY IN EVENING
     Route: 048
  3. STELAZINE [Concomitant]
     Indication: MENTAL DISORDER
     Dosage: UNK UKN, UNK
  4. PROCYCLIDINE [Concomitant]
     Indication: MENTAL DISORDER
     Dosage: UNK UKN, UNK

REACTIONS (2)
  - Leukaemia [Unknown]
  - Essential thrombocythaemia [Unknown]
